FAERS Safety Report 24883000 (Version 1)
Quarter: 2025Q1

REPORT INFORMATION
  Report Type: Spontaneous
  Country: US (occurrence: None)
  Receive Date: 20250124
  Receipt Date: 20250124
  Transmission Date: 20250408
  Serious: Yes (Hospitalization)
  Sender: FDA-CTU
  Company Number: None

PATIENT
  Sex: Male

DRUGS (11)
  1. TACROLIMUS [Suspect]
     Active Substance: TACROLIMUS
     Indication: Renal transplant
     Dosage: FREQUENCY : TWICE A DAY;?
     Route: 048
     Dates: start: 20180424
  2. BACTRIM TAB 400-SOMG [Concomitant]
  3. DONEPEZIL [Concomitant]
     Active Substance: DONEPEZIL
  4. ELIQUIS [Concomitant]
     Active Substance: APIXABAN
  5. FLOMAX [Concomitant]
     Active Substance: TAMSULOSIN HYDROCHLORIDE
  6. LASIX TAB 40MG [Concomitant]
  7. LOSARTAN POT TAB 25MG [Concomitant]
  8. LOW DOSE ASA TAB 81 MG [Concomitant]
  9. PEPCID TAB 20MG [Concomitant]
  10. PREDNISONE [Concomitant]
     Active Substance: PREDNISONE
  11. ULORIC TAB 40MG [Concomitant]

REACTIONS (2)
  - Hospitalisation [None]
  - Rehabilitation therapy [None]
